FAERS Safety Report 8620112-6 (Version None)
Quarter: 2012Q3

REPORT INFORMATION
  Report Type: 
  Country: None (occurrence: None)
  Receive Date: 20120816
  Receipt Date: 20120816
  Transmission Date: 20120928
  Serious: No
  Sender: FDA-Public Use
  Company Number: None

PATIENT
  Age: 41 Year
  Sex: Female
  Weight: 117.028 kg

DRUGS (1)
  1. IBUPROFEN [Suspect]
     Indication: ABDOMINAL PAIN
     Dosage: 600MG /8MLONCE IV
     Route: 042
     Dates: start: 20120607, end: 20120607

REACTIONS (2)
  - THROMBOPHLEBITIS SUPERFICIAL [None]
  - PROCEDURAL PAIN [None]
